FAERS Safety Report 10890259 (Version 1)
Quarter: 2015Q1

REPORT INFORMATION
  Report Type: Report from Study
  Country: CA (occurrence: CA)
  Receive Date: 20150305
  Receipt Date: 20150305
  Transmission Date: 20150721
  Serious: Yes (Life-Threatening, Other)
  Sender: FDA-Public Use
  Company Number: CA-JNJFOC-20141206837

PATIENT
  Age: 26 Year
  Sex: Male
  Weight: 70.31 kg

DRUGS (2)
  1. STELARA [Suspect]
     Active Substance: USTEKINUMAB
     Indication: CROHN^S DISEASE
     Route: 058
     Dates: start: 20140529, end: 20141209
  2. STELARA [Suspect]
     Active Substance: USTEKINUMAB
     Indication: HIDRADENITIS
     Route: 058
     Dates: start: 20140529, end: 20141209

REACTIONS (3)
  - Brain neoplasm malignant [Unknown]
  - Product use issue [Unknown]
  - Colectomy [Unknown]

NARRATIVE: CASE EVENT DATE: 201412
